FAERS Safety Report 6548604-4 (Version None)
Quarter: 2010Q1

REPORT INFORMATION
  Report Type: 
  Country: None (occurrence: None)
  Receive Date: 20100124
  Receipt Date: 20090909
  Transmission Date: 20100710
  Serious: No
  Sender: FDA-Public Use
  Company Number: US-ALLERGAN-0912607US

PATIENT
  Age: 80 Year
  Sex: Female

DRUGS (1)
  1. RESTASIS [Suspect]
     Indication: POSTOPERATIVE CARE
     Dosage: UNK
     Dates: end: 20090906

REACTIONS (2)
  - EYE IRRITATION [None]
  - EYE SWELLING [None]
